FAERS Safety Report 18017627 (Version 1)
Quarter: 2020Q3

REPORT INFORMATION
  Report Type: Spontaneous
  Country: US (occurrence: US)
  Receive Date: 20200713
  Receipt Date: 20200713
  Transmission Date: 20201103
  Serious: No
  Sender: FDA-Public Use
  Company Number: None

PATIENT
  Age: 63 Year
  Sex: Female
  Weight: 72.57 kg

DRUGS (7)
  1. ORAJEL MAXIMUM STRENGTH [Suspect]
     Active Substance: BENZOCAINE\MENTHOL
     Indication: TOOTHACHE
     Dosage: ?          QUANTITY:1 UNK ? UNKNOWN;?
     Route: 065
     Dates: start: 20200616, end: 20200618
  2. XANAX [Concomitant]
     Active Substance: ALPRAZOLAM
  3. HALCION [Concomitant]
     Active Substance: TRIAZOLAM
  4. WALFINATE [Concomitant]
  5. ADVIL [Concomitant]
     Active Substance: IBUPROFEN
  6. BENADRYL [Concomitant]
     Active Substance: DIPHENHYDRAMINE HYDROCHLORIDE
  7. AMBIEN [Concomitant]
     Active Substance: ZOLPIDEM TARTRATE

REACTIONS (9)
  - Tongue discomfort [None]
  - Nausea [None]
  - Hypoaesthesia oral [None]
  - Headache [None]
  - Dizziness [None]
  - Glossitis [None]
  - Fatigue [None]
  - Oropharyngeal pain [None]
  - Lip swelling [None]

NARRATIVE: CASE EVENT DATE: 20200617
